FAERS Safety Report 10801983 (Version 1)
Quarter: 2015Q1

REPORT INFORMATION
  Report Type: Spontaneous
  Country: US (occurrence: US)
  Receive Date: 20150217
  Receipt Date: 20150217
  Transmission Date: 20150721
  Serious: Yes (Death)
  Sender: FDA-Public Use
  Company Number: US-BANPHARM-20153432

PATIENT
  Age: 21 Year
  Sex: Female

DRUGS (11)
  1. LIDOCAINE HYDROCHLORIDE UNKNOWN PRODUCT [Suspect]
     Active Substance: LIDOCAINE HYDROCHLORIDE
  2. COCAINE [Suspect]
     Active Substance: COCAINE
  3. CITALOPRAM [Suspect]
     Active Substance: CITALOPRAM HYDROBROMIDE
  4. PROMETHAZINE [Suspect]
     Active Substance: PROMETHAZINE\PROMETHAZINE HYDROCHLORIDE
  5. BENZODIAZEPINE [Suspect]
     Active Substance: BENZODIAZEPINE
  6. MARIJUANA [Suspect]
     Active Substance: CANNABIS SATIVA SUBSP. INDICA TOP
  7. OXYCODONE [Suspect]
     Active Substance: OXYCODONE
  8. DEXTROMETHORPHAN [Suspect]
     Active Substance: DEXTROMETHORPHAN
  9. MORPHINE [Suspect]
     Active Substance: MORPHINE
  10. AMPHETAMINE [Suspect]
     Active Substance: AMPHETAMINE
  11. FLUOXETINE [Suspect]
     Active Substance: FLUOXETINE\FLUOXETINE HYDROCHLORIDE

REACTIONS (1)
  - Death [Fatal]
